FAERS Safety Report 17814538 (Version 2)
Quarter: 2020Q2

REPORT INFORMATION
  Report Type: Spontaneous
  Country: AR (occurrence: AR)
  Receive Date: 20200522
  Receipt Date: 20200602
  Transmission Date: 20200714
  Serious: Yes (Other)
  Sender: FDA-Public Use
  Company Number: AR-AMGEN-ARGSP2020078606

PATIENT
  Age: 67 Year
  Sex: Female

DRUGS (2)
  1. METFORMINA + GLIBENCLAMIDA [GLIBENCLAMIDE;METFORMIN HYDROCHLORIDE] [Concomitant]
     Dosage: UNK
  2. ENBREL [Suspect]
     Active Substance: ETANERCEPT
     Indication: RHEUMATOID ARTHRITIS
     Dosage: 50 MG, WEEKLY
     Route: 065
     Dates: start: 20190701

REACTIONS (2)
  - Blood glucose decreased [Not Recovered/Not Resolved]
  - Diabetic complication [Not Recovered/Not Resolved]

NARRATIVE: CASE EVENT DATE: 2020
